FAERS Safety Report 18979129 (Version 1)
Quarter: 2021Q1

REPORT INFORMATION
  Report Type: Spontaneous
  Country: GB (occurrence: GB)
  Receive Date: 20210308
  Receipt Date: 20210308
  Transmission Date: 20210420
  Serious: Yes (Disabling, Other)
  Sender: FDA-Public Use
  Company Number: GB-ADVANZ PHARMA-202102001598

PATIENT

DRUGS (11)
  1. PREDNISOLONE. [Concomitant]
     Active Substance: PREDNISOLONE
     Dosage: 6 DOSAGE FORM, QD
     Dates: start: 20210215
  2. ZAPAIN [Concomitant]
     Active Substance: ACETAMINOPHEN\CODEINE PHOSPHATE
     Dosage: UNK, QID (TAKE 1 OR 2 4 TIMES A DAY )
     Dates: start: 20210107, end: 20210119
  3. DUORESP SPIROMAX [Concomitant]
     Active Substance: BUDESONIDE\FORMOTEROL
     Dosage: 2 DOSAGE FORM, BID (INHALE TWO PUFFS TWICE A DAY)
     Dates: start: 20201117
  4. FLUOXETINE [Concomitant]
     Active Substance: FLUOXETINE HYDROCHLORIDE
     Dosage: 2 DOSAGE FORM, QD
     Dates: start: 20201117
  5. SALBUTAMOL [Concomitant]
     Active Substance: ALBUTEROL
     Dosage: 2 DOSAGE FORM, PRN (2 PUFFS AS REQUIRED FOR WHEEZE OR BREATHLESSNESS.)
     Dates: start: 20201117
  6. AMOXICILLIN. [Concomitant]
     Active Substance: AMOXICILLIN
     Dosage: 1 DOSAGE FORM, TID
     Dates: start: 20210107, end: 20210114
  7. DOXYCYCLINE. [Concomitant]
     Active Substance: DOXYCYCLINE
     Dosage: 1 DOSAGE FORM, QD
     Dates: start: 20210215, end: 20210219
  8. LANSOPRAZOLE. [Concomitant]
     Active Substance: LANSOPRAZOLE
     Dosage: 1 DOSAGE FORM, QD
     Dates: start: 20201117
  9. TIOTROPIUM [Concomitant]
     Active Substance: TIOTROPIUM
     Dosage: 2 DOSAGE FORM, QD (TWO PUFFS ONCE DAILY
     Dates: start: 20201117
  10. DOXYCYCLINE. [Concomitant]
     Active Substance: DOXYCYCLINE
     Dosage: TAKE TWO NOW THEN ONE DAILY
     Dates: start: 20210215, end: 20210219
  11. PREDNISOLONE. [Suspect]
     Active Substance: PREDNISOLONE
     Dosage: 5 MG TABLET
     Dates: start: 20210219

REACTIONS (1)
  - Back pain [Recovered/Resolved]

NARRATIVE: CASE EVENT DATE: 20210219
